FAERS Safety Report 5456100-0 (Version None)
Quarter: 2007Q3

REPORT INFORMATION
  Report Type: 
  Country: None (occurrence: None)
  Receive Date: 20070917
  Receipt Date: 20070917
  Transmission Date: 20080115
  Serious: Yes (Life-Threatening, Other)
  Sender: FDA-Public Use
  Company Number: None

PATIENT
  Age: 67 Year
  Sex: Female
  Weight: 68.0396 kg

DRUGS (2)
  1. EQUATE CALCIUM CITRATE + D WALMART-DISTRIBUTOR PERRIGO-PACKAGER [Suspect]
     Indication: CALCIUM DEFICIENCY
     Dosage: 315 MG. 4 X DAY
     Dates: start: 20070819, end: 20070823
  2. EQUATE CALCIUM CITRATE + D WALMART-DISTRIBUTOR PERRIGO-PACKAGER [Suspect]
     Indication: PARATHYROIDECTOMY
     Dosage: 315 MG. 4 X DAY
     Dates: start: 20070819, end: 20070823

REACTIONS (7)
  - ASTHENIA [None]
  - DISORIENTATION [None]
  - DIZZINESS [None]
  - HYPOAESTHESIA ORAL [None]
  - MUSCLE SPASMS [None]
  - PHARMACEUTICAL PRODUCT COMPLAINT [None]
  - PHOTOPSIA [None]
